FAERS Safety Report 9036831 (Version 1)
Quarter: 2013Q1

REPORT INFORMATION
  Report Type: Spontaneous
  Country: US (occurrence: None)
  Receive Date: 20130118
  Receipt Date: 20130118
  Transmission Date: 20140127
  Serious: No
  Sender: FDA-Public Use
  Company Number: None

PATIENT
  Age: 29 Year
  Sex: Male
  Weight: 84.37 kg

DRUGS (3)
  1. METOPROLOL ER [Suspect]
     Indication: HYPERTENSION
     Route: 048
     Dates: start: 20110301, end: 20130117
  2. METOPROLOL ER [Suspect]
     Indication: HYPERTENSION
     Route: 048
     Dates: start: 20130107, end: 20130111
  3. LORAZEPAM [Concomitant]

REACTIONS (6)
  - Somnolence [None]
  - Somnolence [None]
  - Dyspnoea [None]
  - Confusional state [None]
  - Change in sustained attention [None]
  - Product substitution issue [None]
